FAERS Safety Report 23342586 (Version 1)
Quarter: 2023Q4

REPORT INFORMATION
  Report Type: Spontaneous
  Country: GB (occurrence: GB)
  Receive Date: 20231227
  Receipt Date: 20231227
  Transmission Date: 20240109
  Serious: Yes (Hospitalization, Other)
  Sender: FDA-Public Use
  Company Number: GB-PHARMVIT-4556-3352-ER23-RN843

PATIENT
  Age: 7 Year

DRUGS (1)
  1. PREDNISOLONE [Suspect]
     Active Substance: PREDNISOLONE
     Route: 065

REACTIONS (3)
  - Immunosuppression [Recovering/Resolving]
  - Iridocyclitis [Recovering/Resolving]
  - Epstein-Barr virus infection [Recovering/Resolving]
